FAERS Safety Report 20003368 (Version 1)
Quarter: 2021Q4

REPORT INFORMATION
  Report Type: Spontaneous
  Country: US (occurrence: US)
  Receive Date: 20211028
  Receipt Date: 20211028
  Transmission Date: 20220303
  Serious: No
  Sender: FDA-Public Use
  Company Number: US-THERATECHNOLOGIES INC.-2021-THE-TES-000277

PATIENT
  Sex: Male

DRUGS (4)
  1. EGRIFTA SV [Suspect]
     Active Substance: TESAMORELIN ACETATE
     Indication: Product used for unknown indication
     Dosage: UNK
     Route: 058
     Dates: start: 202107
  2. EGRIFTA SV [Suspect]
     Active Substance: TESAMORELIN ACETATE
     Dosage: UNK
     Route: 058
  3. CELEBREX [Suspect]
     Active Substance: CELECOXIB
     Indication: Back disorder
     Route: 065
  4. LYRICA [Suspect]
     Active Substance: PREGABALIN
     Indication: Back disorder
     Route: 065

REACTIONS (5)
  - Peripheral swelling [Unknown]
  - Arthralgia [Unknown]
  - Product preparation issue [Unknown]
  - Incorrect dose administered [Unknown]
  - Intentional dose omission [Unknown]
